FAERS Safety Report 14880687 (Version 1)
Quarter: 2018Q2

REPORT INFORMATION
  Report Type: Report from Study
  Country: US (occurrence: BR)
  Receive Date: 20180511
  Receipt Date: 20180511
  Transmission Date: 20180711
  Serious: Yes (Other)
  Sender: FDA-Public Use
  Company Number: US-SUNOVION-2018SUN001885

PATIENT
  Age: 77 Year
  Sex: Female
  Weight: 105 kg

DRUGS (3)
  1. FORASEQ [Suspect]
     Active Substance: BUDESONIDE\FORMOTEROL FUMARATE
     Indication: PULMONARY EMBOLISM
     Dosage: 1 DF, BID  (400MCG/12MCG)
     Route: 065
  2. INDACATEROL AND GLYCOPYRROLATE [Suspect]
     Active Substance: GLYCOPYRROLATE\INDACATEROL MALEATE
     Indication: PULMONARY EMBOLISM
     Dosage: UNK, QD
     Route: 055
     Dates: start: 201512
  3. RELVAR [Concomitant]
     Active Substance: FLUTICASONE FUROATE\VILANTEROL TRIFENATATE
     Dosage: UNK
     Dates: start: 201703

REACTIONS (5)
  - Pulmonary embolism [Unknown]
  - Nervousness [Not Recovered/Not Resolved]
  - Productive cough [Recovered/Resolved]
  - Product use in unapproved indication [Unknown]
  - Catarrh [Recovering/Resolving]

NARRATIVE: CASE EVENT DATE: 201702
